FAERS Safety Report 22608932 (Version 4)
Quarter: 2023Q4

REPORT INFORMATION
  Report Type: Report from Study
  Country: BR (occurrence: BR)
  Receive Date: 20230616
  Receipt Date: 20231012
  Transmission Date: 20240109
  Serious: Yes (Other)
  Sender: FDA-Public Use
  Company Number: BR-TAKEDA-2023TUS058682

PATIENT
  Sex: Male

DRUGS (1)
  1. HEMO-8R [Suspect]
     Active Substance: ANTIHEMOPHILIC FACTOR, HUMAN RECOMBINANT
     Indication: Factor VIII deficiency
     Dosage: 500 INTERNATIONAL UNIT, 1/WEEK
     Route: 042

REACTIONS (7)
  - Vein rupture [Unknown]
  - Haematoma [Unknown]
  - Poor venous access [Unknown]
  - Tongue biting [Unknown]
  - Fall [Unknown]
  - Tongue injury [Unknown]
  - Limb injury [Unknown]
